FAERS Safety Report 5756925-8 (Version None)
Quarter: 2008Q2

REPORT INFORMATION
  Report Type: 
  Country: None (occurrence: None)
  Receive Date: 20080529
  Receipt Date: 20080514
  Transmission Date: 20081010
  Serious: Yes (Other)
  Sender: FDA-Public Use
  Company Number: 2008AL004938

PATIENT
  Sex: Female

DRUGS (1)
  1. DIGOXIN [Suspect]

REACTIONS (5)
  - DRUG TOXICITY [None]
  - HEART RATE DECREASED [None]
  - HYPOTENSION [None]
  - URINARY TRACT INFECTION [None]
  - VOMITING [None]
